FAERS Safety Report 5002008-4 (Version None)
Quarter: 2006Q2

REPORT INFORMATION
  Report Type: 
  Country: None (occurrence: None)
  Receive Date: 20060511
  Receipt Date: 20060511
  Transmission Date: 20061013
  Serious: Yes (Other)
  Sender: FDA-Public Use
  Company Number: None

PATIENT
  Age: 26 Year
  Sex: Female

DRUGS (3)
  1. BUPROPRION SR 150 MG ONE BID TEVA [Suspect]
     Indication: ATTENTION DEFICIT/HYPERACTIVITY DISORDER
     Dosage: PO [1 YR AGO]
     Route: 048
  2. BUPROPRION SR 150 MG ONE BID TEVA [Suspect]
     Indication: DYSTHYMIC DISORDER
     Dosage: PO [1 YR AGO]
     Route: 048
  3. BUPROPRION SR 150 MG ONE BID TEVA [Suspect]
     Indication: GENERALISED ANXIETY DISORDER
     Dosage: PO [1 YR AGO]
     Route: 048

REACTIONS (1)
  - DRUG EFFECT DECREASED [None]
